FAERS Safety Report 21956507 (Version 3)
Quarter: 2023Q1

REPORT INFORMATION
  Report Type: Report from Study
  Country: US (occurrence: US)
  Receive Date: 20230206
  Receipt Date: 20230328
  Transmission Date: 20230417
  Serious: Yes (Other)
  Sender: FDA-Public Use
  Company Number: US-GILEAD-2023-0612672

PATIENT
  Sex: Female
  Weight: 56.9 kg

DRUGS (5)
  1. AMBRISENTAN [Suspect]
     Active Substance: AMBRISENTAN
     Indication: Pulmonary arterial hypertension
     Dosage: 10 MG, QD, REDUCING DOSE 1.375 MG
     Route: 065
     Dates: start: 20220728
  2. AMBRISENTAN [Suspect]
     Active Substance: AMBRISENTAN
     Indication: Pulmonary hypertension
  3. ORENITRAM [Suspect]
     Active Substance: TREPROSTINIL
     Indication: Product used for unknown indication
     Dosage: 1.625 MG
     Route: 065
  4. OPSUMIT [Concomitant]
     Active Substance: MACITENTAN
  5. SILDENAFIL [Concomitant]
     Active Substance: SILDENAFIL

REACTIONS (2)
  - Hereditary haemorrhagic telangiectasia [Unknown]
  - Illness [Recovered/Resolved]
